FAERS Safety Report 5812216-8 (Version None)
Quarter: 2008Q3

REPORT INFORMATION
  Report Type: 
  Country: None (occurrence: None)
  Receive Date: 20080716
  Receipt Date: 20080710
  Transmission Date: 20090109
  Serious: Yes (Hospitalization)
  Sender: FDA-Public Use
  Company Number: BR-ABBOTT-08P-020-0462367-00

PATIENT
  Sex: Male

DRUGS (1)
  1. HUMIRA [Suspect]
     Indication: CROHN'S DISEASE
     Dosage: 1 APPLICATION EVERY 14 DAYS
     Route: 058
     Dates: start: 20080616

REACTIONS (2)
  - SKIN ULCER [None]
  - SKIN ULCER HAEMORRHAGE [None]
